FAERS Safety Report 6520696-8 (Version None)
Quarter: 2009Q4

REPORT INFORMATION
  Report Type: 
  Country: None (occurrence: None)
  Receive Date: 20091229
  Receipt Date: 20091217
  Transmission Date: 20100525
  Serious: No
  Sender: FDA-Public Use
  Company Number: US-ROXANE LABORATORIES, INC.-2009-RO-01282RO

PATIENT
  Age: 88 Year
  Sex: Male

DRUGS (1)
  1. IPRATROPIUM BROMIDE [Suspect]
     Indication: RHINORRHOEA
     Route: 045

REACTIONS (3)
  - NASAL DISCOMFORT [None]
  - RHINORRHOEA [None]
  - SNEEZING [None]
